FAERS Safety Report 6020620-0 (Version None)
Quarter: 2008Q4

REPORT INFORMATION
  Report Type: 
  Country: None (occurrence: None)
  Receive Date: 20081222
  Receipt Date: 20081212
  Transmission Date: 20090506
  Serious: Yes (Other)
  Sender: FDA-Public Use
  Company Number: 100#03#2008-06249

PATIENT
  Age: 22 Year
  Sex: Female

DRUGS (1)
  1. SULFAMETHOXAZOLE AND TRIMETHOPRIM [Suspect]
     Indication: GASTROENTERITIS
     Dosage: 800 + 160 MG TWICE DAILY ORAL
     Route: 048
     Dates: start: 20081128, end: 20081201

REACTIONS (3)
  - EYELID OEDEMA [None]
  - PARAESTHESIA ORAL [None]
  - RASH PAPULAR [None]
